FAERS Safety Report 22223498 (Version 1)
Quarter: 2023Q2

REPORT INFORMATION
  Report Type: Spontaneous
  Country: TR (occurrence: TR)
  Receive Date: 20230418
  Receipt Date: 20230418
  Transmission Date: 20230722
  Serious: Yes (Hospitalization)
  Sender: FDA-Public Use
  Company Number: TR-CHEPLA-2023004853

PATIENT
  Age: 70 Year
  Sex: Male

DRUGS (2)
  1. CAPECITABINE [Suspect]
     Active Substance: CAPECITABINE
     Indication: Rectal adenocarcinoma
     Dosage: FRQUENCY TWICE, FIVE DAYS PER WEEK?DAILY DOSE: 1650 MILLIGRAM/M?
  2. CAPECITABINE [Suspect]
     Active Substance: CAPECITABINE
     Indication: Rectal adenocarcinoma
     Dosage: FREQUENCY:TWICE?DAILY DOSE: 1000 MILLIGRAM

REACTIONS (1)
  - Cutaneous vasculitis [Recovered/Resolved]
